FAERS Safety Report 5612613-X (Version None)
Quarter: 2008Q1

REPORT INFORMATION
  Report Type: 
  Country: None (occurrence: None)
  Receive Date: 20080204
  Receipt Date: 20080125
  Transmission Date: 20080703
  Serious: Yes (Other)
  Sender: FDA-Public Use
  Company Number: B0503493A

PATIENT
  Age: 48 Year
  Sex: Male

DRUGS (2)
  1. IMIGRAN NOVUM [Suspect]
     Dosage: 50MG PER DAY
     Route: 065
     Dates: end: 20070531
  2. NOZINAN [Concomitant]

REACTIONS (3)
  - ANXIETY [None]
  - DEPENDENCE [None]
  - HEADACHE [None]
